FAERS Safety Report 19065108 (Version 1)
Quarter: 2021Q1

REPORT INFORMATION
  Report Type: Spontaneous
  Country: FR (occurrence: FR)
  Receive Date: 20210326
  Receipt Date: 20210326
  Transmission Date: 20210420
  Serious: Yes (Hospitalization)
  Sender: FDA-Public Use
  Company Number: FR-ROCHE-2796135

PATIENT
  Age: 56 Year

DRUGS (1)
  1. XELODA [Suspect]
     Active Substance: CAPECITABINE
     Indication: BREAST CANCER
     Route: 048
     Dates: start: 20210218, end: 20210222

REACTIONS (3)
  - Troponin increased [Recovering/Resolving]
  - Chest pain [Recovering/Resolving]
  - Ejection fraction decreased [Recovering/Resolving]

NARRATIVE: CASE EVENT DATE: 20210221
